FAERS Safety Report 6280421-5 (Version None)
Quarter: 2009Q3

REPORT INFORMATION
  Report Type: 
  Country: None (occurrence: None)
  Receive Date: 20090724
  Receipt Date: 20090720
  Transmission Date: 20100115
  Serious: Yes (Life-Threatening, Hospitalization)
  Sender: FDA-Public Use
  Company Number: FR-PFIZER INC-2009242461

PATIENT
  Age: 67 Year

DRUGS (5)
  1. TAHOR [Suspect]
     Dosage: 20 MG, 1X/DAY
     Route: 048
  2. PREVISCAN [Suspect]
     Indication: ARRHYTHMIA SUPRAVENTRICULAR
     Dosage: 20 MG, 1X/DAY
     Route: 048
     Dates: end: 20071025
  3. LEVOTHYROX [Suspect]
     Dosage: 100 UG, 1X/DAY
     Route: 048
  4. ALLOPURINOL [Suspect]
     Dosage: 100 MG, 1X/DAY
     Route: 048
  5. CORDARONE [Suspect]
     Dosage: 400 MG, 5 DAYS OUT OF 7
     Route: 048

REACTIONS (2)
  - CARDIAC TAMPONADE [None]
  - PERICARDIAL HAEMORRHAGE [None]
